FAERS Safety Report 21156402 (Version 1)
Quarter: 2022Q3

REPORT INFORMATION
  Report Type: Spontaneous
  Country: US (occurrence: US)
  Receive Date: 20220801
  Receipt Date: 20220801
  Transmission Date: 20221027
  Serious: Yes (Other)
  Sender: FDA-Public Use
  Company Number: US-LUPIN PHARMACEUTICALS INC.-2022-09921

PATIENT
  Sex: Female

DRUGS (21)
  1. HYDROCORTISONE [Suspect]
     Active Substance: HYDROCORTISONE
     Indication: Product used for unknown indication
     Dosage: UNK
     Route: 065
  2. VINCRISTINE [Suspect]
     Active Substance: VINCRISTINE
     Indication: Acute lymphocytic leukaemia
     Dosage: UNK INDUCTION CHEMOTHERAPY; FOR 4 WEEKS
     Route: 042
     Dates: start: 201112, end: 201201
  3. VINCRISTINE [Suspect]
     Active Substance: VINCRISTINE
     Dosage: UNK CONSOLIDATION THERAPY
     Route: 042
     Dates: start: 201204
  4. VINCRISTINE [Suspect]
     Active Substance: VINCRISTINE
     Dosage: UNK, MAINTENANCE THERAPY
     Route: 065
     Dates: start: 201211, end: 201404
  5. CYTARABINE [Suspect]
     Active Substance: CYTARABINE
     Indication: Acute lymphocytic leukaemia
     Dosage: UNK INDUCTION CHEMOTHERAPY; FOR 4 WEEKS
     Route: 037
     Dates: start: 201112, end: 201201
  6. CYTARABINE [Suspect]
     Active Substance: CYTARABINE
     Dosage: CONSOLIDATION THERAPY
     Route: 065
     Dates: start: 201204
  7. CYTARABINE [Suspect]
     Active Substance: CYTARABINE
     Dosage: MAINTENANCE THERAPY
     Route: 065
     Dates: start: 201211, end: 201404
  8. CYTARABINE [Suspect]
     Active Substance: CYTARABINE
     Dosage: 40 MG
     Route: 065
     Dates: start: 202001, end: 202002
  9. METHOTREXATE [Suspect]
     Active Substance: METHOTREXATE
     Indication: Acute lymphocytic leukaemia
     Dosage: UNK INDUCTION CHEMOTHERAPY;FOR 4 WEEKS
     Route: 037
     Dates: start: 201112, end: 201201
  10. METHOTREXATE [Suspect]
     Active Substance: METHOTREXATE
     Indication: Acute lymphocytic leukaemia recurrent
     Dosage: UNK CONSOLIDATION THERAPY
     Route: 037
     Dates: start: 201204
  11. METHOTREXATE [Suspect]
     Active Substance: METHOTREXATE
     Dosage: 15 MG ONCE AT THE START OF THERAPY AND ON HER DAY 6 AND DAY 35 OF THE TREATMENT
     Route: 037
     Dates: start: 202001, end: 202002
  12. METHOTREXATE [Suspect]
     Active Substance: METHOTREXATE
     Dosage: UNK MAINTENANCE THERAPY
     Route: 065
     Dates: start: 201211, end: 201411
  13. CYCLOPHOSPHAMIDE [Suspect]
     Active Substance: CYCLOPHOSPHAMIDE
     Indication: Acute lymphocytic leukaemia
     Dosage: UNK CONSOLIDATION THERAPY
     Route: 042
     Dates: start: 201204
  14. INOTUZUMAB OZOGAMICIN [Suspect]
     Active Substance: INOTUZUMAB OZOGAMICIN
     Indication: Acute lymphocytic leukaemia recurrent
     Dosage: 0.77 MG
     Route: 042
     Dates: start: 202001, end: 202002
  15. THIOGUANINE [Concomitant]
     Active Substance: THIOGUANINE
     Indication: Acute lymphocytic leukaemia
     Dosage: UNK MAINTENANCE THERAPY
     Route: 065
     Dates: start: 201211, end: 201404
  16. DAUNORUBICIN [Concomitant]
     Active Substance: DAUNORUBICIN
     Indication: Acute lymphocytic leukaemia
     Dosage: UNK INDUCTION CHEMOTHERAPY; FOR 4 WEEKS
     Route: 042
     Dates: start: 201112, end: 201201
  17. PEG/L-ASPARAGINASE [Concomitant]
     Active Substance: PEGASPARGASE
     Indication: Acute lymphocytic leukaemia
     Dosage: UNK INDUCTION CHEMOTHERAPY; FOR 4 WEEKS
     Route: 030
     Dates: start: 201112, end: 201201
  18. PEG/L-ASPARAGINASE [Concomitant]
     Active Substance: PEGASPARGASE
     Dosage: UNK CONSOLIDATION THERAPY
     Route: 030
     Dates: start: 201204
  19. MERCAPTOPURINE [Concomitant]
     Active Substance: MERCAPTOPURINE
     Indication: Acute lymphocytic leukaemia
     Dosage: UNK CONSOLIDATION THERAPY
     Route: 048
     Dates: start: 201204
  20. GONADOTROPHIN, CHORIONIC [Concomitant]
     Active Substance: GONADOTROPHIN, CHORIONIC
     Indication: Controlled ovarian stimulation
     Dosage: 150 INTERNATIONAL UNIT
     Route: 065
     Dates: start: 202003
  21. ASPARAGINASE ERWINIA CHRYSANTHEMI [Concomitant]
     Active Substance: ASPARAGINASE ERWINIA CHRYSANTHEMI
     Indication: Acute lymphocytic leukaemia
     Dosage: UNK MAINTENANCE THERAPY
     Route: 065
     Dates: start: 201211, end: 201404

REACTIONS (1)
  - Ovarian failure [Not Recovered/Not Resolved]

NARRATIVE: CASE EVENT DATE: 20200101
